FAERS Safety Report 8157960-5 (Version None)
Quarter: 2012Q1

REPORT INFORMATION
  Report Type: 
  Country: None (occurrence: None)
  Receive Date: 20120222
  Receipt Date: 20120214
  Transmission Date: 20120608
  Serious: Yes (Hospitalization, Other)
  Sender: FDA-Public Use
  Company Number: PHHY2012BR013572

PATIENT
  Sex: Male
  Weight: 2.8 kg

DRUGS (4)
  1. DIOVAN HCT [Suspect]
     Dosage: MATERNAL DOSE: 160/12.5 MG, ONE TABLET DAILY
     Route: 064
  2. YASMIN [Concomitant]
     Dosage: MATERNAL DOSE: UNK
     Route: 064
  3. ALDOMET [Concomitant]
     Dosage: MATERNAL DOSE: 500 MG, UNK
     Route: 064
  4. APRESOLINE [Suspect]
     Dosage: MATERNAL DOSE: 500 MG, UNK
     Route: 064

REACTIONS (4)
  - INFECTION [None]
  - CONVULSION [None]
  - FOETAL EXPOSURE DURING PREGNANCY [None]
  - PREMATURE BABY [None]
